FAERS Safety Report 6135045-7 (Version None)
Quarter: 2009Q1

REPORT INFORMATION
  Report Type: 
  Country: None (occurrence: None)
  Receive Date: 20090325
  Receipt Date: 20090308
  Transmission Date: 20090719
  Serious: Yes (Other)
  Sender: FDA-Public Use
  Company Number: 2005S1001725

PATIENT
  Age: 59 Year
  Sex: Female
  Weight: 74.8435 kg

DRUGS (8)
  1. PHOSPHOSODA GINGER LEMON [Suspect]
     Indication: COLONOSCOPY
     Dosage: 90 ML; TOTAL; PO
     Route: 048
     Dates: start: 20010214, end: 20010214
  2. LIPITOR [Concomitant]
  3. ZYRTEC [Concomitant]
  4. HUMALOG [Concomitant]
  5. INSULIN (PORK) [Concomitant]
  6. HUMULIN /00640001/ [Concomitant]
  7. VALDIUM /00017001/ [Concomitant]
  8. DEMEROL [Concomitant]

REACTIONS (7)
  - BLOOD CREATININE INCREASED [None]
  - DIABETIC NEPHROPATHY [None]
  - GASTROOESOPHAGEAL REFLUX DISEASE [None]
  - HIATUS HERNIA [None]
  - RENAL INJURY [None]
  - RENAL TUBULAR DISORDER [None]
  - RETINOPATHY [None]
